FAERS Safety Report 25847947 (Version 1)
Quarter: 2025Q3

REPORT INFORMATION
  Report Type: Spontaneous
  Country: EU (occurrence: EU)
  Receive Date: 20250925
  Receipt Date: 20250925
  Transmission Date: 20251021
  Serious: Yes (Other)
  Sender: TEVA
  Company Number: None

PATIENT
  Age: 71 Year
  Sex: Female

DRUGS (7)
  1. ALENDRONIC ACID [Suspect]
     Active Substance: ALENDRONIC ACID
     Indication: Osteoporosis
     Dosage: ALENDRONIC ACID CINFAMED WEEKLY, EFG TABLETS, 4 TABLETS
     Route: 048
     Dates: start: 20250811, end: 20250820
  2. LORAZEPAM [Concomitant]
     Active Substance: LORAZEPAM
     Indication: Insomnia
     Dosage: EFG TABLETS, 50 TABLETS
     Route: 048
     Dates: start: 20211111
  3. ANORO ELLIPTA [Concomitant]
     Active Substance: UMECLIDINIUM BROMIDE\VILANTEROL TRIFENATATE
     Indication: Bronchitis chronic
     Route: 065
     Dates: start: 20250219
  4. CALCIFEDIOL [Concomitant]
     Active Substance: CALCIFEDIOL
     Indication: Pathological fracture
     Dosage: 10 CAPSULES (PVC/PVDC-ALUMINUM BLISTER)
     Route: 048
     Dates: start: 20250729
  5. OMEPRAZOLE [Concomitant]
     Active Substance: OMEPRAZOLE
     Indication: Osteoporosis
     Route: 048
     Dates: start: 20250812
  6. CALCIUM CARBONATE\CHOLECALCIFEROL [Concomitant]
     Active Substance: CALCIUM CARBONATE\CHOLECALCIFEROL
     Indication: Osteoporosis
     Route: 048
     Dates: start: 20250811
  7. EVENITY [Concomitant]
     Active Substance: ROMOSOZUMAB-AQQG
     Indication: Pathological fracture
     Dosage: 105 MG OF 1.17 ML, SOLUTION FOR INJECTION IN PRE-FILLED PEN
     Route: 058
     Dates: start: 20250729

REACTIONS (1)
  - Iridocyclitis [Unknown]

NARRATIVE: CASE EVENT DATE: 20250820
